FAERS Safety Report 17034125 (Version 2)
Quarter: 2019Q4

REPORT INFORMATION
  Report Type: Spontaneous
  Country: TR (occurrence: TR)
  Receive Date: 20191114
  Receipt Date: 20191209
  Transmission Date: 20200122
  Serious: Yes (Life-Threatening)
  Sender: FDA-Public Use
  Company Number: TR-009507513-1911TUR003734

PATIENT
  Age: 83 Year
  Sex: Female
  Weight: 69 kg

DRUGS (7)
  1. PROPOFOL. [Concomitant]
     Active Substance: PROPOFOL
     Dosage: 100 MILLIGRAM
     Route: 042
  2. MIDAZOLAM [Concomitant]
     Active Substance: MIDAZOLAM HYDROCHLORIDE
     Dosage: 3 MILLIGRAM
     Route: 042
  3. FENTANYL. [Concomitant]
     Active Substance: FENTANYL
     Dosage: 50 MICROGRAM
     Route: 042
  4. KETAMINE [Concomitant]
     Active Substance: KETAMINE
     Dosage: 50 MILLIGRAM
     Route: 042
  5. ESMERON [Suspect]
     Active Substance: ROCURONIUM BROMIDE
     Indication: RADICAL CYSTECTOMY
     Dosage: 50 MILLIGRAM
     Route: 042
     Dates: start: 20191106, end: 20191106
  6. PLAVIX [Concomitant]
     Active Substance: CLOPIDOGREL BISULFATE
     Dosage: UNK
     Dates: end: 20191028
  7. BRIDION [Suspect]
     Active Substance: SUGAMMADEX
     Indication: NEUROMUSCULAR BLOCKADE REVERSAL
     Dosage: 100 MILLIGRAM (TOTAL DOSE ALSO REPORTED AS 200 MILLIGRAM)
     Route: 042
     Dates: start: 20191106, end: 20191106

REACTIONS (2)
  - Therapeutic product effect prolonged [Recovered/Resolved]
  - Therapeutic product effect incomplete [Recovered/Resolved]

NARRATIVE: CASE EVENT DATE: 20191106
